FAERS Safety Report 7254872-6 (Version None)
Quarter: 2011Q1

REPORT INFORMATION
  Report Type: 
  Country: None (occurrence: None)
  Receive Date: 20110129
  Receipt Date: 20100310
  Transmission Date: 20110831
  Serious: No
  Sender: FDA-Public Use
  Company Number: US-ABBOTT-10P-163-0631551-00

PATIENT
  Sex: Female
  Weight: 109.41 kg

DRUGS (4)
  1. CARBIDOPA AND LEVODOPA [Concomitant]
     Indication: RESTLESS LEGS SYNDROME
  2. FOSAMAX [Concomitant]
     Indication: OSTEOPOROSIS
  3. MAXZIDE [Concomitant]
     Indication: FLUID IMBALANCE
  4. HUMIRA [Suspect]
     Indication: PSORIATIC ARTHROPATHY
     Dates: start: 20090901, end: 20100301

REACTIONS (7)
  - MUSCULOSKELETAL STIFFNESS [None]
  - TENSION HEADACHE [None]
  - MUSCLE SPASMS [None]
  - PSORIASIS [None]
  - HEADACHE [None]
  - MOBILITY DECREASED [None]
  - SPONDYLITIS [None]
